FAERS Safety Report 7142581-3 (Version None)
Quarter: 2010Q4

REPORT INFORMATION
  Report Type: 
  Country: None (occurrence: None)
  Receive Date: 20101207
  Receipt Date: 20101203
  Transmission Date: 20110411
  Serious: Yes (Life-Threatening, Hospitalization, Disabling)
  Sender: FDA-Public Use
  Company Number: US-PFIZER INC-2010164309

PATIENT
  Sex: Female

DRUGS (1)
  1. SOMATROPIN [Suspect]
     Indication: HYPOPITUITARISM
     Dosage: UNK

REACTIONS (1)
  - TRAUMATIC BRAIN INJURY [None]
